FAERS Safety Report 12825884 (Version 4)
Quarter: 2016Q4

REPORT INFORMATION
  Report Type: Report from Study
  Country: US (occurrence: US)
  Receive Date: 20161007
  Receipt Date: 20161227
  Transmission Date: 20170207
  Serious: Yes (Death, Hospitalization, Other)
  Sender: FDA-Public Use
  Company Number: US-JNJFOC-20161004624

PATIENT
  Age: 70 Year
  Sex: Male

DRUGS (18)
  1. IMBRUVICA [Suspect]
     Active Substance: IBRUTINIB
     Indication: CHRONIC LYMPHOCYTIC LEUKAEMIA
     Route: 048
     Dates: start: 20141130
  2. PREDNISONE. [Concomitant]
     Active Substance: PREDNISONE
     Dosage: TWICE A WEEK AS DIRECTED
     Route: 048
     Dates: start: 20140107
  3. DOXYCYCLINE. [Concomitant]
     Active Substance: DOXYCYCLINE
  4. AVODART [Concomitant]
     Active Substance: DUTASTERIDE
     Indication: URINARY TRACT INFECTION
     Route: 048
  5. TRILIPIX [Concomitant]
     Active Substance: FENOFIBRIC ACID
     Route: 048
  6. FAMOTIDINE. [Concomitant]
     Active Substance: FAMOTIDINE
     Route: 048
  7. AZASITE [Concomitant]
     Active Substance: AZITHROMYCIN MONOHYDRATE
     Dosage: 1 %, DROPS AS DIRECTED
  8. ALLOPURINOL. [Concomitant]
     Active Substance: ALLOPURINOL
     Route: 048
     Dates: start: 20130810
  9. FLOMAX [Concomitant]
     Active Substance: TAMSULOSIN HYDROCHLORIDE
     Indication: URINARY TRACT INFECTION
     Route: 048
  10. METOPROLOL TARTRATE. [Concomitant]
     Active Substance: METOPROLOL TARTRATE
     Route: 048
  11. FLONASE [Concomitant]
     Active Substance: FLUTICASONE PROPIONATE
     Dosage: 50 MCG, SPRAY SUSPENSION
     Route: 061
  12. VORICONAZOLE. [Concomitant]
     Active Substance: VORICONAZOLE
     Dosage: 200 MG, Q12 HR
     Route: 048
  13. AUGMENTIN [Suspect]
     Active Substance: AMOXICILLIN\CLAVULANATE POTASSIUM
     Indication: SINUSITIS
     Dosage: UNK,UNK Q MONTHLY
     Route: 065
  14. VALTREX [Concomitant]
     Active Substance: VALACYCLOVIR HYDROCHLORIDE
     Route: 048
  15. PEPCID [Concomitant]
     Active Substance: FAMOTIDINE
  16. IMBRUVICA [Suspect]
     Active Substance: IBRUTINIB
     Indication: CHRONIC LYMPHOCYTIC LEUKAEMIA
     Route: 048
     Dates: start: 2015
  17. TRAMADOL HCL [Concomitant]
     Active Substance: TRAMADOL HYDROCHLORIDE
     Route: 048
  18. METROGEL [Concomitant]
     Active Substance: METRONIDAZOLE
     Dosage: 1%,GEL WITH PUMP. AS DIRECTED
     Route: 061

REACTIONS (42)
  - Productive cough [Unknown]
  - Pneumonia [Recovering/Resolving]
  - Chest discomfort [Unknown]
  - Bursitis [Unknown]
  - Erythema [Unknown]
  - Fatigue [Unknown]
  - Oedema peripheral [Unknown]
  - Salivary hypersecretion [Unknown]
  - Asthenia [Unknown]
  - Constipation [Unknown]
  - Bowen^s disease [Unknown]
  - Pyrexia [Unknown]
  - Death [Fatal]
  - Hip fracture [Not Recovered/Not Resolved]
  - Bronchitis [Unknown]
  - Gait disturbance [Unknown]
  - Contusion [Unknown]
  - Pleural effusion [Unknown]
  - Cachexia [Unknown]
  - Blood lactate dehydrogenase increased [Unknown]
  - Incorrect dose administered [Unknown]
  - Urine abnormality [Unknown]
  - Eye discharge [Unknown]
  - Hypogammaglobulinaemia [Unknown]
  - Rosacea [Unknown]
  - Rash erythematous [Unknown]
  - Sinusitis [Unknown]
  - Weight decreased [Unknown]
  - Arthralgia [Recovering/Resolving]
  - Diarrhoea [Unknown]
  - Peripheral swelling [Unknown]
  - Anaemia [Unknown]
  - Rash papular [Unknown]
  - Fall [Unknown]
  - Dyspnoea exertional [Unknown]
  - Lung infiltration [Unknown]
  - Blepharitis [Unknown]
  - Chromaturia [Unknown]
  - Abdominal mass [Unknown]
  - Hypomagnesaemia [Unknown]
  - Lymphadenopathy [Unknown]
  - Off label use [Unknown]

NARRATIVE: CASE EVENT DATE: 20141130
